FAERS Safety Report 4620214-5 (Version None)
Quarter: 2005Q1

REPORT INFORMATION
  Report Type: 
  Country: None (occurrence: None)
  Receive Date: 20050324
  Receipt Date: 20050311
  Transmission Date: 20050727
  Serious: Yes (Hospitalization)
  Sender: FDA-Public Use
  Company Number: 2005SE00918

PATIENT
  Age: 76 Year
  Sex: Male

DRUGS (11)
  1. MAREVAN [Suspect]
     Indication: MITRAL VALVE DISEASE
     Dates: end: 20050130
  2. ROSUVASTATIN [Suspect]
  3. MINIDIAB [Concomitant]
  4. ORABET [Concomitant]
  5. MAGNYL [Concomitant]
  6. DIGOXIN [Concomitant]
  7. SPIRON [Concomitant]
  8. COZAAR [Concomitant]
  9. SELOZOK [Concomitant]
  10. SEREVENT [Concomitant]
  11. FUROSEMIDE [Concomitant]

REACTIONS (5)
  - DIABETES MELLITUS INADEQUATE CONTROL [None]
  - HAEMATEMESIS [None]
  - HAEMOGLOBIN DECREASED [None]
  - INTERNATIONAL NORMALISED RATIO INCREASED [None]
  - OESOPHAGITIS [None]
